FAERS Safety Report 12763613 (Version 2)
Quarter: 2016Q4

REPORT INFORMATION
  Report Type: Spontaneous
  Country: US (occurrence: US)
  Receive Date: 20160920
  Receipt Date: 20161025
  Transmission Date: 20170207
  Serious: Yes (Hospitalization, Other)
  Sender: FDA-Public Use
  Company Number: US-RELYPSA-RLY2016002460

PATIENT
  Age: 87 Year
  Sex: Female

DRUGS (1)
  1. VELTASSA [Suspect]
     Active Substance: PATIROMER
     Indication: HYPERKALAEMIA
     Dosage: 8.4 MG, QD
     Route: 048
     Dates: start: 20160816, end: 201608

REACTIONS (6)
  - Diarrhoea [Not Recovered/Not Resolved]
  - Pleural effusion [Unknown]
  - Abdominal pain [Unknown]
  - Dehydration [Unknown]
  - Asthenia [Unknown]
  - Ascites [Unknown]

NARRATIVE: CASE EVENT DATE: 201608
